FAERS Safety Report 18363403 (Version 1)
Quarter: 2020Q4

REPORT INFORMATION
  Report Type: Spontaneous
  Country: US (occurrence: US)
  Receive Date: 20201009
  Receipt Date: 20201009
  Transmission Date: 20210114
  Serious: No
  Sender: FDA-Public Use
  Company Number: US-TEVA-2020-US-1836278

PATIENT
  Age: 61 Year
  Sex: Female

DRUGS (1)
  1. CLONAZEPAM TEVA [Suspect]
     Active Substance: CLONAZEPAM
     Indication: ANXIETY
     Route: 065
     Dates: start: 202002

REACTIONS (9)
  - Headache [Unknown]
  - Drug ineffective [Unknown]
  - Anxiety [Unknown]
  - Dizziness [Unknown]
  - Insomnia [Unknown]
  - Gait inability [Unknown]
  - Nausea [Unknown]
  - Hot flush [Unknown]
  - Constipation [Unknown]

NARRATIVE: CASE EVENT DATE: 2020
